FAERS Safety Report 9224597 (Version 1)
Quarter: 2013Q1

REPORT INFORMATION
  Report Type: Spontaneous
  Country: US (occurrence: None)
  Receive Date: 20120917
  Receipt Date: 20120917
  Transmission Date: 20140127
  Serious: Yes (Other)
  Sender: FDA-Public Use
  Company Number: 1000027525

PATIENT
  Age: 16 Year
  Sex: Female
  Weight: 64 kg

DRUGS (4)
  1. CELEXA (CITALOPRAM HYDROBROMIDE) (TABLETS) [Suspect]
     Indication: DEPRESSION
     Route: 048
     Dates: start: 20111212
  2. REBIF (INTERFERON BETA-1A) [Suspect]
     Route: 050
     Dates: start: 20111221
  3. EXCEDRIN BACK AND BODY (ACETAMINOPHEN, ASPIRIN) (TABLETS) - (ACETAMINOPHEN) [Concomitant]
  4. IBUPROFEN (IBUPROFEN) (200 MILLIGRAM, TABLETS) (IBUPROFEN) [Concomitant]

REACTIONS (2)
  - Suicidal ideation [None]
  - Depressed mood [None]
